FAERS Safety Report 9659268 (Version 1)
Quarter: 2013Q4

REPORT INFORMATION
  Report Type: Spontaneous
  Country: US (occurrence: US)
  Receive Date: 20131031
  Receipt Date: 20131031
  Transmission Date: 20140711
  Serious: Yes (Other)
  Sender: FDA-Public Use
  Company Number: US-ENDO PHARMACEUTICALS INC.-HYDR20110014

PATIENT
  Age: 61 Year
  Sex: Female

DRUGS (2)
  1. HYDROXYZINE HYDROCHLORIDE TABLETS 50MG [Suspect]
     Indication: HYPERSENSITIVITY
     Route: 048
     Dates: start: 20070617, end: 20070617
  2. HYDROXYZINE HYDROCHLORIDE TABLETS 50MG [Suspect]
     Route: 048
     Dates: start: 200706, end: 20070617

REACTIONS (1)
  - Convulsion [Recovered/Resolved]
